FAERS Safety Report 4283635-9 (Version None)
Quarter: 2004Q1

REPORT INFORMATION
  Report Type: 
  Country: None (occurrence: None)
  Receive Date: 20040129
  Receipt Date: 20040129
  Transmission Date: 20041129
  Serious: Yes (Life-Threatening)
  Sender: FDA-Public Use
  Company Number: None

PATIENT
  Age: 51 Year
  Sex: Male
  Weight: 73 kg

DRUGS (27)
  1. IL2 [Suspect]
     Indication: MALIGNANT MELANOMA
     Dosage: EVERY 21 DAYS X 3
     Dates: start: 20031117
  2. IL2 [Suspect]
     Indication: MALIGNANT MELANOMA
     Dosage: EVERY 21 DAYS X 3
     Dates: start: 20031208
  3. IL2 [Suspect]
     Indication: MALIGNANT MELANOMA
     Dosage: EVERY 21 DAYS X 3
     Dates: start: 20031229
  4. CISPLATIN [Suspect]
     Dosage: EVERY 21 DAYS X 3
     Dates: start: 20031117
  5. CISPLATIN [Suspect]
     Dosage: EVERY 21 DAYS X 3
     Dates: start: 20031208
  6. CISPLATIN [Suspect]
     Dosage: EVERY 21 DAYS X 3
     Dates: start: 20031229
  7. VINBLASTINE SULFATE [Suspect]
     Dosage: EVERY 21 DAYS X 3
     Dates: start: 20031117
  8. VINBLASTINE SULFATE [Suspect]
     Dosage: EVERY 21 DAYS X 3
     Dates: start: 20031208
  9. VINBLASTINE SULFATE [Suspect]
     Dosage: EVERY 21 DAYS X 3
     Dates: start: 20031229
  10. DACARBAZINE [Suspect]
     Dosage: EVERY 21 DAYS X 3
     Dates: start: 20031117
  11. DACARBAZINE [Suspect]
     Dosage: EVERY 21 DAYS X 3
     Dates: start: 20031208
  12. DACARBAZINE [Suspect]
     Dosage: EVERY 21 DAYS X 3
     Dates: start: 20031229
  13. INTERFERON ALPHA 2 B [Suspect]
     Dosage: EVERY 21 DAYS X 3
     Dates: start: 20031117
  14. INTERFERON ALPHA 2 B [Suspect]
     Dosage: EVERY 21 DAYS X 3
     Dates: start: 20031208
  15. INTERFERON ALPHA 2 B [Suspect]
     Dosage: EVERY 21 DAYS X 3
     Dates: start: 20031229
  16. G-CSF [Suspect]
     Dosage: EVERY 21 DAYS X 3
     Dates: start: 20031117
  17. G-CSF [Suspect]
     Dosage: EVERY 21 DAYS X 3
     Dates: start: 20031208
  18. G-CSF [Suspect]
     Dosage: EVERY 21 DAYS X 3
     Dates: start: 20031229
  19. COUMADIN [Concomitant]
  20. IMODIUM [Concomitant]
  21. REGLAN [Concomitant]
  22. KCL TAB [Concomitant]
  23. MEGACE [Concomitant]
  24. KEFLEX [Concomitant]
  25. ATIVAN [Concomitant]
  26. PEPCID [Concomitant]
  27. LEXAPRO [Concomitant]

REACTIONS (13)
  - BACTERIA STOOL IDENTIFIED [None]
  - CLOSTRIDIUM COLITIS [None]
  - DEHYDRATION [None]
  - DIALYSIS [None]
  - DIARRHOEA [None]
  - FEBRILE NEUTROPENIA [None]
  - MULTI-ORGAN FAILURE [None]
  - NAUSEA [None]
  - RENAL FAILURE ACUTE [None]
  - SEPSIS [None]
  - STAPHYLOCOCCAL INFECTION [None]
  - TOXIC DILATATION OF COLON [None]
  - VOMITING [None]
